FAERS Safety Report 10298717 (Version 2)
Quarter: 2014Q3

REPORT INFORMATION
  Report Type: Spontaneous
  Country: US (occurrence: US)
  Receive Date: 20140711
  Receipt Date: 20140711
  Transmission Date: 20150326
  Serious: No
  Sender: FDA-Public Use
  Company Number: US-GILEAD-2013-0081526

PATIENT
  Sex: Female

DRUGS (3)
  1. VENTAVIS [Concomitant]
     Active Substance: ILOPROST
  2. LETAIRIS [Suspect]
     Active Substance: AMBRISENTAN
     Indication: PULMONARY HYPERTENSION
     Dosage: 5 MG, QD
     Route: 048
     Dates: start: 20130213
  3. LETAIRIS [Suspect]
     Active Substance: AMBRISENTAN
     Dates: start: 20130227

REACTIONS (22)
  - Pain [Unknown]
  - Vision blurred [Unknown]
  - Myalgia [Unknown]
  - Tremor [Unknown]
  - Neuropathy peripheral [Unknown]
  - Headache [Unknown]
  - Dyspnoea [Unknown]
  - Pruritus [Unknown]
  - Abdominal pain [Unknown]
  - Wheezing [Unknown]
  - Anxiety [Unknown]
  - Chest pain [Unknown]
  - Rash [Unknown]
  - Fatigue [Unknown]
  - Tachycardia [Unknown]
  - Maculopathy [Unknown]
  - Dizziness [Unknown]
  - Oedema peripheral [Unknown]
  - Back pain [Unknown]
  - Depression [Unknown]
  - Asthenia [Unknown]
  - Nausea [Unknown]
